FAERS Safety Report 24404459 (Version 1)
Quarter: 2024Q4

REPORT INFORMATION
  Report Type: Spontaneous
  Country: JP (occurrence: JP)
  Receive Date: 20241007
  Receipt Date: 20241007
  Transmission Date: 20250115
  Serious: No
  Sender: ROCHE
  Company Number: JP-CHUGAI-2024001000

PATIENT
  Age: 7 Decade
  Sex: Female

DRUGS (1)
  1. GAZYVA [Suspect]
     Active Substance: OBINUTUZUMAB
     Indication: Product used for unknown indication
     Dosage: 1000 MILLIGRAM/DAY?ADMINISTERED UNTIL 12/OCT/2023
     Route: 065
     Dates: start: 20230613, end: 20231012

REACTIONS (1)
  - Neutropenia [Unknown]
